FAERS Safety Report 5223011-5 (Version None)
Quarter: 2007Q1

REPORT INFORMATION
  Report Type: 
  Country: None (occurrence: None)
  Receive Date: 20070129
  Receipt Date: 20070122
  Transmission Date: 20070707
  Serious: Yes (Hospitalization)
  Sender: FDA-Public Use
  Company Number: US-BAXTER-2006BH014961

PATIENT
  Age: 33 Year
  Sex: Female
  Weight: 70 kg

DRUGS (5)
  1. MORPHINE SULFATE [Suspect]
     Indication: ANALGESIC EFFECT
     Route: 042
     Dates: start: 20061211, end: 20061211
  2. MORPHINE SULFATE [Suspect]
     Indication: PELVIC PAIN
     Route: 042
     Dates: start: 20061211, end: 20061211
  3. MORPHINE SULFATE [Suspect]
     Route: 042
     Dates: start: 20061211, end: 20061211
  4. MORPHINE SULFATE [Suspect]
     Route: 042
     Dates: start: 20061211, end: 20061211
  5. CEFTRIAXONE [Suspect]
     Indication: DRUG USE FOR UNKNOWN INDICATION
     Route: 042
     Dates: start: 20061211, end: 20061211

REACTIONS (6)
  - CHEST DISCOMFORT [None]
  - CHEST PAIN [None]
  - DYSPEPSIA [None]
  - NAUSEA [None]
  - RESPIRATORY ARREST [None]
  - RETCHING [None]
